FAERS Safety Report 14798544 (Version 2)
Quarter: 2018Q2

REPORT INFORMATION
  Report Type: Report from Study
  Country: DE (occurrence: DE)
  Receive Date: 20180424
  Receipt Date: 20180501
  Transmission Date: 20180711
  Serious: Yes (Hospitalization)
  Sender: FDA-Public Use
  Company Number: DE-ROCHE-2110252

PATIENT
  Age: 30 Year
  Sex: Male
  Weight: 86.6 kg

DRUGS (6)
  1. RANITIC [Concomitant]
     Active Substance: RANITIDINE HYDROCHLORIDE
     Route: 048
     Dates: start: 20171115
  2. COTRIM FORTE [Concomitant]
     Active Substance: SULFAMETHOXAZOLE\TRIMETHOPRIM
     Route: 048
     Dates: start: 20171117
  3. OCTAGAM IMMUNE GLOBULIN (HUMAN) [Concomitant]
     Active Substance: HUMAN IMMUNOGLOBULIN G
     Route: 042
     Dates: start: 20180420, end: 20180420
  4. VENETOCLAX. [Suspect]
     Active Substance: VENETOCLAX
     Indication: CHRONIC LYMPHOCYTIC LEUKAEMIA
     Dosage: MOST RECENT DOSE OF VENETOCLAX (400 MG) PRIOR TO THE EVENT 04/APR/2018?20 MG (2 TABLET AT 10 MG, CYC
     Route: 048
     Dates: start: 20171206
  5. OBINUTUZUMAB. [Suspect]
     Active Substance: OBINUTUZUMAB
     Indication: CHRONIC LYMPHOCYTIC LEUKAEMIA
     Dosage: MOST RECENT DOSE OF OBINUTUZUMAB (1000 MG) PRIOR TO THE EVENT 16/MAR/2018?CYCLE 1: 100 MG, D1; 900 M
     Route: 042
     Dates: start: 20171115
  6. IBRUTINIB [Suspect]
     Active Substance: IBRUTINIB
     Indication: CHRONIC LYMPHOCYTIC LEUKAEMIA
     Dosage: MOST RECENT DOSE OF IBRUTINIB (420MG) PRIOR TO THE EVENT 04/APR/2018?CYCLES 1 TO 12: 420 MG, D1-28,
     Route: 048
     Dates: start: 20171115

REACTIONS (1)
  - Hepatotoxicity [Recovered/Resolved]

NARRATIVE: CASE EVENT DATE: 20180417
